FAERS Safety Report 5893010-9 (Version None)
Quarter: 2008Q3

REPORT INFORMATION
  Report Type: 
  Country: None (occurrence: None)
  Receive Date: 20080923
  Receipt Date: 20070921
  Transmission Date: 20090109
  Serious: No
  Sender: FDA-Public Use
  Company Number: US-ASTRAZENECA-2007UW06359

PATIENT
  Age: 18502 Day
  Sex: Female
  Weight: 69.1 kg

DRUGS (2)
  1. SEROQUEL [Suspect]
     Indication: SCHIZOPHRENIA
     Route: 048
  2. ZYPREXA [Concomitant]

REACTIONS (4)
  - CHEST PAIN [None]
  - PANCYTOPENIA [None]
  - TENSION HEADACHE [None]
  - TYPE 2 DIABETES MELLITUS [None]
